FAERS Safety Report 23466228 (Version 1)
Quarter: 2024Q1

REPORT INFORMATION
  Report Type: Spontaneous
  Country: CH (occurrence: CH)
  Receive Date: 20240201
  Receipt Date: 20240201
  Transmission Date: 20240410
  Serious: Yes (Hospitalization)
  Sender: FDA-Public Use
  Company Number: None

PATIENT
  Age: 66 Year
  Sex: Female
  Weight: 81.7 kg

DRUGS (9)
  1. OXALIPLATIN [Suspect]
     Active Substance: OXALIPLATIN
     Indication: Rectal adenocarcinoma
     Route: 041
     Dates: start: 20231115, end: 20231115
  2. XELODA [Suspect]
     Active Substance: CAPECITABINE
     Indication: Rectal adenocarcinoma
     Route: 048
     Dates: start: 20231115, end: 20231119
  3. LAXIPEG [Concomitant]
     Dosage: TIME INTERVAL: AS NECESSARY: AS NECESSARY
  4. EZETIMIBE [Concomitant]
     Active Substance: EZETIMIBE
  5. METOCLOPRAMIDE HYDROCHLORIDE [Concomitant]
     Active Substance: METOCLOPRAMIDE HYDROCHLORIDE
     Dosage: TIME INTERVAL: AS NECESSARY: AS NECESSARY
  6. ROSUVASTATIN CALCIUM [Concomitant]
     Active Substance: ROSUVASTATIN CALCIUM
  7. ASPIRIN [Concomitant]
     Active Substance: ASPIRIN
  8. IMODIUM [Concomitant]
     Active Substance: LOPERAMIDE HYDROCHLORIDE
     Dosage: TIME INTERVAL: AS NECESSARY: AS NECESSARY
  9. BACTRIM [Concomitant]
     Active Substance: SULFAMETHOXAZOLE\TRIMETHOPRIM
     Dates: start: 20231114, end: 20231119

REACTIONS (1)
  - Acute myocardial infarction [Recovered/Resolved]

NARRATIVE: CASE EVENT DATE: 20231119
